APPROVED DRUG PRODUCT: COLESTID
Active Ingredient: COLESTIPOL HYDROCHLORIDE
Strength: 1GM
Dosage Form/Route: TABLET;ORAL
Application: N020222 | Product #001 | TE Code: AB
Applicant: PFIZER INC
Approved: Jul 19, 1994 | RLD: Yes | RS: No | Type: RX